FAERS Safety Report 7808131-0 (Version None)
Quarter: 2011Q4

REPORT INFORMATION
  Report Type: 
  Country: None (occurrence: None)
  Receive Date: 20111011
  Receipt Date: 20110926
  Transmission Date: 20120403
  Serious: Yes (Hospitalization)
  Sender: FDA-Public Use
  Company Number: US-ROCHE-1001663

PATIENT
  Age: 57 Year
  Sex: Male

DRUGS (3)
  1. AVASTIN [Suspect]
     Indication: HEAD AND NECK CANCER
     Dates: start: 20110803
  2. CISPLATIN [Suspect]
     Indication: HEAD AND NECK CANCER
     Dates: start: 20110803
  3. CETUXIMAB [Suspect]
     Indication: HEAD AND NECK CANCER
     Dates: start: 20110803

REACTIONS (9)
  - CHEST X-RAY ABNORMAL [None]
  - LUNG INFILTRATION [None]
  - PYREXIA [None]
  - ODYNOPHAGIA [None]
  - MUCOSAL INFLAMMATION [None]
  - COUGH [None]
  - SPUTUM DISCOLOURED [None]
  - DYSPHAGIA [None]
  - PRODUCTIVE COUGH [None]
